FAERS Safety Report 9940233 (Version 1)
Quarter: 2014Q1

REPORT INFORMATION
  Report Type: Report from Study
  Country: US (occurrence: US)
  Receive Date: 20140303
  Receipt Date: 20140303
  Transmission Date: 20141002
  Serious: No
  Sender: FDA-Public Use
  Company Number: US-ABBVIE-13P-163-1035340-00

PATIENT
  Age: 55 Year
  Sex: Male
  Weight: 98.52 kg

DRUGS (4)
  1. HUMIRA [Suspect]
     Indication: COLITIS
     Route: 058
     Dates: start: 201210
  2. CELLCEPT [Concomitant]
     Indication: LIVER TRANSPLANT
  3. PROGRAF [Concomitant]
     Indication: LIVER TRANSPLANT
  4. PREDNISONE [Concomitant]
     Indication: PRODUCT USED FOR UNKNOWN INDICATION

REACTIONS (5)
  - Off label use [Unknown]
  - Colitis [Recovering/Resolving]
  - Injection site pain [Unknown]
  - Injection site pain [Unknown]
  - Injection site pain [Unknown]
